FAERS Safety Report 4692748-9 (Version None)
Quarter: 2005Q2

REPORT INFORMATION
  Report Type: 
  Country: None (occurrence: None)
  Receive Date: 20050617
  Receipt Date: 20050610
  Transmission Date: 20051028
  Serious: Yes (Life-Threatening, Hospitalization)
  Sender: FDA-Public Use
  Company Number: SK-GLAXOSMITHKLINE-B0384082A

PATIENT
  Age: 70 Year
  Sex: Female
  Weight: 54 kg

DRUGS (4)
  1. BLINDED TRIAL MEDICATION [Suspect]
     Route: 042
     Dates: start: 20050527, end: 20050530
  2. ONDANSETRON [Suspect]
     Dosage: 32MG SINGLE DOSE
     Route: 042
     Dates: start: 20050527, end: 20050527
  3. NAVELBINE [Suspect]
     Dosage: 48MG PER DAY
     Route: 042
     Dates: start: 20050527, end: 20050527
  4. CISPLATIN [Suspect]
     Dosage: 113MG PER DAY
     Route: 042
     Dates: start: 20050527, end: 20050527

REACTIONS (1)
  - FEBRILE NEUTROPENIA [None]
